FAERS Safety Report 7540417-X (Version None)
Quarter: 2011Q2

REPORT INFORMATION
  Report Type: 
  Country: None (occurrence: None)
  Receive Date: 20110610
  Receipt Date: 20110531
  Transmission Date: 20111010
  Serious: Yes (Hospitalization)
  Sender: FDA-Public Use
  Company Number: US-ELI_LILLY_AND_COMPANY-US201104000616

PATIENT
  Sex: Male
  Weight: 79.365 kg

DRUGS (18)
  1. WARFARIN SODIUM [Concomitant]
     Dosage: 5 MG, UNK
     Route: 048
  2. OXYCONTIN [Concomitant]
  3. VICODIN ES [Concomitant]
     Indication: PAIN
     Dosage: 1 DF, PRN
     Route: 048
  4. LOVENOX [Concomitant]
     Dosage: 80 MG, BID
     Route: 058
  5. VITAMIN D [Concomitant]
     Dosage: 50000 U, WEEKLY (1/W)
  6. FLONASE [Concomitant]
     Dosage: 2 DF, QD
     Route: 045
  7. CIALIS [Suspect]
     Indication: ERECTILE DYSFUNCTION
     Dosage: 20 MG, PRN
     Dates: end: 20110329
  8. ROBAXIN [Concomitant]
     Dosage: 1000 MG, QID
     Route: 048
  9. SIMVASTATIN [Concomitant]
  10. VITAMIN D [Concomitant]
     Dosage: 50000 U, MONTHLY (1/M)
  11. LISINOPRIL [Concomitant]
     Dosage: 5 MG, EACH MORNING
     Route: 048
  12. PRAVASTATIN [Concomitant]
     Dosage: 40 MG, EACH EVENING
     Route: 048
  13. ALPRAZOLAM [Concomitant]
     Dosage: 1 MG, PRN
     Route: 048
  14. LACTULOSE [Concomitant]
     Dosage: 30 ML, PRN
  15. MUSE [Concomitant]
     Dosage: 1000 UG, PRN
     Route: 054
  16. MORPHINE [Concomitant]
  17. LACTULOSE [Concomitant]
     Dosage: 15 ML, PRN
  18. TUSSIONEX [Concomitant]
     Dosage: 5 ML, PRN

REACTIONS (3)
  - MEMORY IMPAIRMENT [None]
  - MITRAL VALVE STENOSIS [None]
  - DRUG INEFFECTIVE [None]
